FAERS Safety Report 12926494 (Version 2)
Quarter: 2016Q4

REPORT INFORMATION
  Report Type: Spontaneous
  Country: JP (occurrence: JP)
  Receive Date: 20161109
  Receipt Date: 20161117
  Transmission Date: 20170207
  Serious: Yes (Hospitalization, Other)
  Sender: FDA-Public Use
  Company Number: JP-TEVA-711039ISR

PATIENT
  Age: 65 Year
  Sex: Female
  Weight: 45.3 kg

DRUGS (5)
  1. LAMIVUDINE. [Concomitant]
     Active Substance: LAMIVUDINE
     Dates: start: 2000
  2. ACTONEL [Suspect]
     Active Substance: RISEDRONATE SODIUM
     Indication: BONE PAIN
     Route: 048
     Dates: start: 201106
  3. ADEFOVIR DIPIVOXIL. [Suspect]
     Active Substance: ADEFOVIR DIPIVOXIL
     Indication: CHRONIC HEPATITIS B
     Dosage: 10 MILLIGRAM DAILY;
     Route: 065
     Dates: start: 200610
  4. DOXYCYCLINE. [Concomitant]
     Active Substance: DOXYCYCLINE
  5. ACTONEL [Suspect]
     Active Substance: RISEDRONATE SODIUM
     Indication: OSTEOMALACIA

REACTIONS (12)
  - Musculoskeletal chest pain [Unknown]
  - Fanconi syndrome [Unknown]
  - Hypophosphataemia [Unknown]
  - Arthralgia [Unknown]
  - Glycosuria [Unknown]
  - Metabolic acidosis [Unknown]
  - Osteomalacia [Unknown]
  - Product use issue [Unknown]
  - Aminoaciduria [Unknown]
  - Drug ineffective for unapproved indication [Unknown]
  - Condition aggravated [Unknown]
  - Hypouricaemia [Unknown]

NARRATIVE: CASE EVENT DATE: 201106
